FAERS Safety Report 14663682 (Version 1)
Quarter: 2018Q1

REPORT INFORMATION
  Report Type: Spontaneous
  Country: US (occurrence: US)
  Receive Date: 20180321
  Receipt Date: 20180321
  Transmission Date: 20180509
  Serious: No
  Sender: FDA-Public Use
  Company Number: US-PFIZER INC-2018118141

PATIENT
  Age: 36 Year
  Sex: Female
  Weight: 88 kg

DRUGS (2)
  1. PREDNISONE. [Concomitant]
     Active Substance: PREDNISONE
     Indication: RHEUMATOID ARTHRITIS
     Dosage: 2.5 MG, ONE TIME A DAY
  2. DOXYCYCLINE HYCLATE. [Suspect]
     Active Substance: DOXYCYCLINE HYCLATE
     Indication: LYME DISEASE
     Dosage: 100 MG, CAPSULE, ORALLY, TWICE A DAY
     Route: 048
     Dates: start: 20180302

REACTIONS (14)
  - Insomnia [Unknown]
  - Vomiting [Unknown]
  - Myalgia [Unknown]
  - Rash papular [Unknown]
  - Migraine [Unknown]
  - Bedridden [Unknown]
  - Arthralgia [Unknown]
  - Pyrexia [Not Recovered/Not Resolved]
  - Fatigue [Not Recovered/Not Resolved]
  - Dehydration [Unknown]
  - Nausea [Not Recovered/Not Resolved]
  - Vision blurred [Recovering/Resolving]
  - Hyperhidrosis [Unknown]
  - Rash [Unknown]

NARRATIVE: CASE EVENT DATE: 20180303
